FAERS Safety Report 16351423 (Version 1)
Quarter: 2019Q2

REPORT INFORMATION
  Report Type: Spontaneous
  Country: US (occurrence: US)
  Receive Date: 20190524
  Receipt Date: 20190524
  Transmission Date: 20190711
  Serious: Yes (Other)
  Sender: FDA-Public Use
  Company Number: US-GLAXOSMITHKLINE-US2019091128

PATIENT
  Sex: Female

DRUGS (2)
  1. LAMOTRIGINE. [Suspect]
     Active Substance: LAMOTRIGINE
     Dosage: UNK, 150 MG IN MORNMING, 200 MG IN EVENING
     Route: 048
  2. LAMOTRIGINE. [Suspect]
     Active Substance: LAMOTRIGINE
     Indication: DEPRESSION
     Dosage: UNK,
     Route: 048
     Dates: start: 2009

REACTIONS (9)
  - Corneal disorder [Unknown]
  - Condition aggravated [Unknown]
  - Renal impairment [Unknown]
  - Euphoric mood [Unknown]
  - Vision blurred [Unknown]
  - Autoimmune disorder [Unknown]
  - Joint stiffness [Unknown]
  - Joint swelling [Unknown]
  - Reading disorder [Unknown]
